FAERS Safety Report 6271293-3 (Version None)
Quarter: 2009Q3

REPORT INFORMATION
  Report Type: 
  Country: None (occurrence: None)
  Receive Date: 20090717
  Receipt Date: 20090707
  Transmission Date: 20100115
  Serious: Yes (Hospitalization)
  Sender: FDA-Public Use
  Company Number: HOAFF4688

PATIENT
  Age: 39 Year
  Sex: Male

DRUGS (1)
  1. KETOCONAZOLE [Suspect]
     Indication: TINEA CRURIS
     Route: 048

REACTIONS (3)
  - CHOLESTASIS [None]
  - JAUNDICE [None]
  - PANCREATITIS [None]
